FAERS Safety Report 9572759 (Version 1)
Quarter: 2013Q4

REPORT INFORMATION
  Report Type: Spontaneous
  Country: US (occurrence: US)
  Receive Date: 20131001
  Receipt Date: 20131001
  Transmission Date: 20140711
  Serious: No
  Sender: FDA-Public Use
  Company Number: US-PURDUE-USA-2012-0081536

PATIENT
  Sex: Male

DRUGS (3)
  1. BUTRANS [Suspect]
     Indication: PAIN
     Dosage: 20 MCG, Q1H
     Route: 062
     Dates: start: 20120110
  2. VICODIN [Concomitant]
     Indication: BREAKTHROUGH PAIN
     Dosage: 5/500 TAB BID
     Route: 048
     Dates: start: 20120110
  3. OXYCODONE HCL TABLETS (91-490) [Concomitant]
     Indication: PAIN
     Dosage: 15 MG, Q3H
     Route: 048
     Dates: start: 2010, end: 20120117

REACTIONS (2)
  - Drug effect decreased [Unknown]
  - Drug ineffective [Unknown]
